FAERS Safety Report 8351245-X (Version None)
Quarter: 2012Q2

REPORT INFORMATION
  Report Type: 
  Country: None (occurrence: None)
  Receive Date: 20120510
  Receipt Date: 20120426
  Transmission Date: 20120825
  Serious: Yes (Hospitalization)
  Sender: FDA-Public Use
  Company Number: US-ENDO PHARMACEUTICALS INC.-OPIR20120062

PATIENT
  Sex: Female

DRUGS (7)
  1. OPANA [Suspect]
     Indication: BREAKTHROUGH PAIN
     Route: 048
     Dates: start: 20100101, end: 20120301
  2. OPANA [Suspect]
     Indication: OSTEOARTHRITIS
  3. OPANA [Suspect]
     Indication: CELLULITIS
  4. OPANA [Suspect]
     Indication: NEUROPATHY PERIPHERAL
  5. NUCYNTA [Concomitant]
     Indication: PAIN
     Dates: start: 20120201
  6. OPANA [Suspect]
     Indication: FIBROMYALGIA
  7. OPANA [Suspect]
     Indication: RHEUMATOID ARTHRITIS

REACTIONS (1)
  - CELLULITIS [None]
